FAERS Safety Report 10263971 (Version 1)
Quarter: 2014Q2

REPORT INFORMATION
  Report Type: Spontaneous
  Country: FR (occurrence: FR)
  Receive Date: 20140627
  Receipt Date: 20140627
  Transmission Date: 20141212
  Serious: Yes (Other)
  Sender: FDA-Public Use
  Company Number: FR-ASTRAZENECA-2014SE45557

PATIENT
  Age: 3010 Day
  Sex: Male
  Weight: 30 kg

DRUGS (10)
  1. MOPRAL [Suspect]
     Route: 048
     Dates: end: 20071201
  2. MOPRAL [Suspect]
     Route: 048
     Dates: start: 200803
  3. METHOTREXATE [Suspect]
     Indication: OSTEOSARCOMA
     Dosage: 12000 MG/M2 DOSAGE, MEANING 12840 MG
     Route: 042
     Dates: start: 20071201, end: 20071201
  4. METHOTREXATE [Suspect]
     Indication: OSTEOSARCOMA
     Dosage: 12000 MG/M2 DOSAGE, MEANING 12840 MG
     Route: 042
     Dates: start: 2008
  5. ACTISKENAN [Suspect]
     Route: 048
     Dates: end: 20071130
  6. SETRON [Concomitant]
  7. PARACETAMOL [Concomitant]
  8. PRIMPERAN [Concomitant]
  9. NUBAIN [Concomitant]
  10. CALCIDOSE D3 VITAMIN [Concomitant]

REACTIONS (1)
  - Renal failure acute [Recovered/Resolved]
